FAERS Safety Report 14230204 (Version 3)
Quarter: 2017Q4

REPORT INFORMATION
  Report Type: Spontaneous
  Country: US (occurrence: US)
  Receive Date: 20171128
  Receipt Date: 20171227
  Transmission Date: 20180321
  Serious: Yes (Other)
  Sender: FDA-Public Use
  Company Number: US-BAYER-2017-223310

PATIENT
  Age: 62 Year
  Sex: Female

DRUGS (2)
  1. BETASERON [Suspect]
     Active Substance: INTERFERON BETA-1B
     Indication: MULTIPLE SCLEROSIS
     Dosage: 0.3 MG, QOD
     Route: 058
     Dates: start: 20161031
  2. BETASERON [Suspect]
     Active Substance: INTERFERON BETA-1B
     Indication: MULTIPLE SCLEROSIS
     Dosage: 0.3 MG, QOD
     Route: 058

REACTIONS (12)
  - Multiple sclerosis relapse [None]
  - Memory impairment [None]
  - Paraesthesia [None]
  - Hypoaesthesia [None]
  - Insomnia [None]
  - JC virus test positive [None]
  - Chills [None]
  - Headache [None]
  - Adjustment disorder with depressed mood [None]
  - Dysarthria [None]
  - Hip surgery [None]
  - Pain in extremity [None]

NARRATIVE: CASE EVENT DATE: 2017
